FAERS Safety Report 13538358 (Version 1)
Quarter: 2017Q2

REPORT INFORMATION
  Report Type: Spontaneous
  Country: US (occurrence: US)
  Receive Date: 20170512
  Receipt Date: 20170512
  Transmission Date: 20170830
  Serious: No
  Sender: FDA-Public Use
  Company Number: US-B.I. PHARMACEUTICALS,INC./RIDGEFIELD-2017-BI-026104

PATIENT
  Age: 88 Year
  Sex: Female

DRUGS (2)
  1. SPIRIVA [Suspect]
     Active Substance: TIOTROPIUM BROMIDE MONOHYDRATE
     Indication: CHRONIC OBSTRUCTIVE PULMONARY DISEASE
     Dosage: 2 INHALATIONS FROM 1 CAPSULE DAILY;  FORM STRENGTH: 18 MCG; FORMULATION: CAPSULE? ADMINISTRATION COR
     Route: 055
     Dates: start: 20170103
  2. LISINOPRIL. [Concomitant]
     Active Substance: LISINOPRIL
     Indication: CARDIAC FAILURE CONGESTIVE
     Dosage: ONCE DAILY;  FORM STRENGTH: 2.5MG
     Route: 048

REACTIONS (1)
  - Productive cough [Recovered/Resolved]

NARRATIVE: CASE EVENT DATE: 20170506
